FAERS Safety Report 8953339 (Version 4)
Quarter: 2013Q2

REPORT INFORMATION
  Report Type: Spontaneous
  Country: US (occurrence: US)
  Receive Date: 20121206
  Receipt Date: 20130425
  Transmission Date: 20140414
  Serious: Yes (Other)
  Sender: FDA-Public Use
  Company Number: US-PFIZER INC-2012306280

PATIENT
  Age: 59 Year
  Sex: Male
  Weight: 81.63 kg

DRUGS (3)
  1. CHANTIX [Suspect]
     Indication: SMOKING CESSATION THERAPY
     Dosage: 0.5 MG, 1X/DAY
     Route: 048
     Dates: start: 20121005, end: 201210
  2. CHANTIX [Suspect]
     Dosage: 1 MG, 2X/DAY
     Route: 048
     Dates: start: 201210, end: 20121120
  3. MULTIVITAMINS [Concomitant]
     Indication: SUPPLEMENTATION THERAPY
     Dosage: UNK, 1X/DAY

REACTIONS (15)
  - Suicidal ideation [Recovered/Resolved]
  - Panic reaction [Recovering/Resolving]
  - Paranoia [Recovering/Resolving]
  - Depression [Recovering/Resolving]
  - Mental impairment [Unknown]
  - Impaired work ability [Unknown]
  - Anxiety [Recovering/Resolving]
  - Agitation [Recovering/Resolving]
  - Aggression [Recovering/Resolving]
  - Emotional disorder [Recovering/Resolving]
  - Abnormal dreams [Recovering/Resolving]
  - Nausea [Recovering/Resolving]
  - Retching [Recovered/Resolved]
  - Vomiting [Recovered/Resolved]
  - Eating disorder [Recovering/Resolving]
